FAERS Safety Report 9156155 (Version 1)
Quarter: 2013Q1

REPORT INFORMATION
  Report Type: Report from Study
  Country: US (occurrence: US)
  Receive Date: 20130311
  Receipt Date: 20130311
  Transmission Date: 20140127
  Serious: No
  Sender: FDA-Public Use
  Company Number: US-009507513-1303USA004350

PATIENT
  Sex: Male
  Weight: 99.77 kg

DRUGS (7)
  1. BOCEPREVIR [Suspect]
     Dosage: 800 MG, TID
     Route: 048
  2. RIBAVIRIN [Suspect]
     Dosage: UNK UNK, QD
  3. PEGINTERFERON ALFA-2A [Suspect]
     Dosage: UNK
  4. LEVOTHYROXINE SODIUM [Concomitant]
  5. PRILOSEC [Concomitant]
  6. ASCORBIC ACID [Concomitant]
  7. SAW PALMETTO [Concomitant]

REACTIONS (7)
  - Alopecia [Unknown]
  - Fatigue [Unknown]
  - Nausea [Unknown]
  - Influenza like illness [Unknown]
  - Dyspnoea [Unknown]
  - Hangover [Unknown]
  - Anaemia [Unknown]
